FAERS Safety Report 26194864 (Version 1)
Quarter: 2025Q4

REPORT INFORMATION
  Report Type: Spontaneous
  Country: AU (occurrence: AU)
  Receive Date: 20251224
  Receipt Date: 20251224
  Transmission Date: 20260117
  Serious: Yes (Other)
  Sender: SANDOZ
  Company Number: AU-TGA-0000854870

PATIENT
  Age: 43 Year
  Sex: Female

DRUGS (9)
  1. FLUOXETINE HYDROCHLORIDE [Suspect]
     Active Substance: FLUOXETINE HYDROCHLORIDE
     Indication: Product used for unknown indication
     Dosage: 40 MG
  2. METFORMIN HYDROCHLORIDE [Suspect]
     Active Substance: METFORMIN HYDROCHLORIDE
     Indication: Product used for unknown indication
     Dosage: 250 MG MANE AND 500 MG NOCTE
  3. LEVOTHYROXINE SODIUM [Suspect]
     Active Substance: LEVOTHYROXINE SODIUM
     Indication: Product used for unknown indication
     Dosage: 75 MG
  4. COLLAGEN [Suspect]
     Active Substance: COLLAGEN
     Indication: Product used for unknown indication
     Dosage: UNK
  5. ASCORBIC ACID\FERROUS SULFATE [Suspect]
     Active Substance: ASCORBIC ACID\FERROUS SULFATE
     Indication: Product used for unknown indication
     Dosage: UNK
  6. MOVICOL [Suspect]
     Active Substance: POLYETHYLENE GLYCOL 3350\POTASSIUM CHLORIDE\SODIUM BICARBONATE\SODIUM CHLORIDE
     Indication: Product used for unknown indication
     Dosage: ONE TO TWO SACHET, BD
  7. CLOZARIL [Suspect]
     Active Substance: CLOZAPINE
     Indication: Product used for unknown indication
     Dosage: 300 MG NOCTE, STRENGTH: 100 MG)
  8. DOCUSATE SODIUM\SENNOSIDE B [Suspect]
     Active Substance: DOCUSATE SODIUM\SENNOSIDE B
     Indication: Product used for unknown indication
     Dosage: TWO TABLET NOCTE
  9. VITAMIN D [Suspect]
     Active Substance: VITAMIN D NOS
     Indication: Product used for unknown indication
     Dosage: ONE TABLET MANE

REACTIONS (3)
  - Hallucination, auditory [Unknown]
  - Dyspnoea exertional [Unknown]
  - Dizziness [Unknown]
